FAERS Safety Report 25888030 (Version 1)
Quarter: 2025Q4

REPORT INFORMATION
  Report Type: Spontaneous
  Country: US (occurrence: US)
  Receive Date: 20251007
  Receipt Date: 20251007
  Transmission Date: 20260117
  Serious: No
  Sender: GLENMARK
  Company Number: US-GLENMARK PHARMACEUTICALS-2024GMK096276

PATIENT

DRUGS (2)
  1. DROSPIRENONE\ETHINYL ESTRADIOL [Suspect]
     Active Substance: DROSPIRENONE\ETHINYL ESTRADIOL
     Indication: Oral contraception
     Dosage: UNK UNK, OD (ONCE DAILY AT THE SAME TIME)
     Route: 048
     Dates: start: 20241118
  2. DROSPIRENONE\ETHINYL ESTRADIOL [Suspect]
     Active Substance: DROSPIRENONE\ETHINYL ESTRADIOL
     Indication: Hormone therapy

REACTIONS (4)
  - Nausea [Not Recovered/Not Resolved]
  - Migraine [Unknown]
  - Product use in unapproved indication [Unknown]
  - Product colour issue [Unknown]

NARRATIVE: CASE EVENT DATE: 20241118
